FAERS Safety Report 6838486-5 (Version None)
Quarter: 2010Q3

REPORT INFORMATION
  Report Type: 
  Country: None (occurrence: None)
  Receive Date: 20100713
  Receipt Date: 20070612
  Transmission Date: 20110219
  Serious: No
  Sender: FDA-Public Use
  Company Number: US-PFIZER INC-2007049418

PATIENT
  Sex: Male
  Weight: 108.18 kg

DRUGS (3)
  1. CHANTIX [Suspect]
     Indication: SMOKING CESSATION THERAPY
     Dates: start: 20070605
  2. LEXAPRO [Concomitant]
     Indication: DEPRESSION
  3. DRUG, UNSPECIFIED [Concomitant]

REACTIONS (1)
  - ABNORMAL DREAMS [None]
